FAERS Safety Report 4635611-1 (Version None)
Quarter: 2005Q2

REPORT INFORMATION
  Report Type: 
  Country: None (occurrence: None)
  Receive Date: 20050413
  Receipt Date: 20050404
  Transmission Date: 20051028
  Serious: Yes (Death)
  Sender: FDA-Public Use
  Company Number: 05H-062-0296374-00

PATIENT
  Sex: 0

DRUGS (4)
  1. HEPARIN SODIUM [Suspect]
     Indication: ANTICOAGULANT THERAPY
     Dosage: 1000 UNIT, PER HOUR, INTRAVENOUS  INFUSION
     Route: 042
  2. HEPARIN SODIUM [Suspect]
     Indication: ANTICOAGULANT THERAPY
     Dosage: 5000 UNIT, ONCE, INTRAVENOUS BOLUS
     Route: 040
  3. PLACEBO [Concomitant]
  4. ORAL ANTICOAGULANT [Concomitant]

REACTIONS (1)
  - HAEMORRHAGE [None]
